FAERS Safety Report 4433891-9 (Version None)
Quarter: 2004Q3

REPORT INFORMATION
  Report Type: 
  Country: None (occurrence: None)
  Receive Date: 20040824
  Receipt Date: 20040824
  Transmission Date: 20050211
  Serious: Yes (Hospitalization)
  Sender: FDA-Public Use
  Company Number: None

PATIENT
  Sex: Female
  Weight: 79.8331 kg

DRUGS (2)
  1. REMICADE [Suspect]
     Indication: RHEUMATOID ARTHRITIS
     Dosage: 400MG Q8WK INTRAVENOUS
     Route: 042
     Dates: start: 20020711, end: 20040129
  2. VIOXX [Concomitant]

REACTIONS (3)
  - CHEST PAIN [None]
  - CORONARY ARTERY STENOSIS [None]
  - PAIN IN EXTREMITY [None]
